FAERS Safety Report 8372765-8 (Version None)
Quarter: 2012Q2

REPORT INFORMATION
  Report Type: 
  Country: None (occurrence: None)
  Receive Date: 20120521
  Receipt Date: 20120517
  Transmission Date: 20120825
  Serious: No
  Sender: FDA-Public Use
  Company Number: US-PFIZER INC-2012013799

PATIENT
  Sex: Female

DRUGS (3)
  1. CHANTIX [Suspect]
     Dosage: 1/2 TAB, 2X/DAY
     Route: 048
  2. CHANTIX [Suspect]
     Dosage: 1/2 TAB FOR 4 DAYS, 1X/DAY
     Route: 048
  3. CHANTIX [Suspect]
     Dosage: TAB 1, 2X/DAY
     Route: 048

REACTIONS (1)
  - SLEEP DISORDER [None]
